FAERS Safety Report 5401749-4 (Version None)
Quarter: 2007Q3

REPORT INFORMATION
  Report Type: 
  Country: None (occurrence: None)
  Receive Date: 20070731
  Receipt Date: 20070727
  Transmission Date: 20080115
  Serious: Yes (Other)
  Sender: FDA-Public Use
  Company Number: US-BRISTOL-MYERS SQUIBB COMPANY-13861240

PATIENT
  Age: 23 Year
  Sex: Male

DRUGS (4)
  1. METHOTREXATE SODIUM [Suspect]
     Indication: BONE SARCOMA
  2. IFOSFAMIDE [Suspect]
     Indication: BONE SARCOMA
  3. DOXORUBICIN HCL [Suspect]
     Indication: BONE SARCOMA
  4. CISPLATIN [Suspect]
     Indication: BONE SARCOMA

REACTIONS (1)
  - MYELOID LEUKAEMIA [None]
